FAERS Safety Report 5662196-3 (Version None)
Quarter: 2008Q1

REPORT INFORMATION
  Report Type: 
  Country: None (occurrence: None)
  Receive Date: 20080221
  Receipt Date: 20071023
  Transmission Date: 20080703
  Serious: Yes (Other)
  Sender: FDA-Public Use
  Company Number: PHEH2007US14054

PATIENT
  Sex: Female

DRUGS (5)
  1. DIOVAN [Suspect]
  2. MICARDIS [Suspect]
  3. LISINOPRIL [Suspect]
  4. AVAPRO [Suspect]
  5. ATACAND [Suspect]

REACTIONS (8)
  - ANGIOEDEMA [None]
  - ARTHRALGIA [None]
  - BLOOD CREATINE INCREASED [None]
  - BLOOD UREA INCREASED [None]
  - LIP SWELLING [None]
  - RASH [None]
  - SWELLING [None]
  - SWOLLEN TONGUE [None]
